FAERS Safety Report 10437093 (Version 1)
Quarter: 2014Q3

REPORT INFORMATION
  Report Type: Spontaneous
  Country: US (occurrence: US)
  Receive Date: 20140908
  Receipt Date: 20140908
  Transmission Date: 20150326
  Serious: No
  Sender: FDA-Public Use
  Company Number: US-PFIZER INC-2014247099

PATIENT
  Age: 68 Year
  Sex: Female
  Weight: 95 kg

DRUGS (3)
  1. CALAN [Suspect]
     Active Substance: VERAPAMIL HYDROCHLORIDE
     Dosage: 180 MG (1 TABLET OF 120MG AND HALF TABLET OF 120MG TOGETHER), 2X/DAY
     Route: 048
  2. LIPITOR [Concomitant]
     Active Substance: ATORVASTATIN CALCIUM
     Indication: BLOOD CHOLESTEROL INCREASED
     Dosage: UNK
  3. CALAN [Suspect]
     Active Substance: VERAPAMIL HYDROCHLORIDE
     Indication: HYPERTENSION
     Dosage: 180 MG, 2X/DAY
     Route: 048
     Dates: start: 1994

REACTIONS (1)
  - Body height decreased [Unknown]
